FAERS Safety Report 5032744-5 (Version None)
Quarter: 2006Q2

REPORT INFORMATION
  Report Type: 
  Country: None (occurrence: None)
  Receive Date: 20060620
  Receipt Date: 20060620
  Transmission Date: 20061013
  Serious: Yes (Hospitalization)
  Sender: FDA-Public Use
  Company Number: None

PATIENT
  Age: 85 Year
  Sex: Female

DRUGS (7)
  1. MELOXICAM  7.5 MG BOEHRINGER INGLEHAM [Suspect]
     Indication: OSTEOARTHRITIS
     Dosage: 7.5 MG TWO TIME DAILY PO  5-8 MONTHS
     Route: 048
  2. NAPROSYN [Concomitant]
  3. LORAZEPAM [Concomitant]
  4. PANTOPRAZOLE [Concomitant]
  5. ATENOLOL [Concomitant]
  6. LEVOTHYROXINE SODIUM [Concomitant]
  7. MILK OF MAGNESIA TAB [Concomitant]

REACTIONS (3)
  - FATIGUE [None]
  - HYPONATRAEMIA [None]
  - TREMOR [None]
